FAERS Safety Report 5333951-4 (Version None)
Quarter: 2007Q2

REPORT INFORMATION
  Report Type: 
  Country: None (occurrence: None)
  Receive Date: 20070524
  Receipt Date: 20070514
  Transmission Date: 20071010
  Serious: Yes (Hospitalization)
  Sender: FDA-Public Use
  Company Number: US-AMGEN-US224837

PATIENT
  Sex: Female
  Weight: 57.7 kg

DRUGS (7)
  1. PROCRIT [Suspect]
     Indication: ANAEMIA
     Dates: start: 20060101
  2. SYNTHROID [Concomitant]
     Route: 048
  3. INSULIN [Concomitant]
  4. LIPITOR [Concomitant]
  5. ASPIRIN [Concomitant]
  6. FUROSEMIDE [Concomitant]
  7. ACEBUTOLOL [Concomitant]
     Dates: start: 20070101

REACTIONS (2)
  - ALOPECIA [None]
  - PNEUMONIA [None]
